FAERS Safety Report 18493290 (Version 2)
Quarter: 2020Q4

REPORT INFORMATION
  Report Type: Other
  Country: JP (occurrence: JP)
  Receive Date: 20201112
  Receipt Date: 20201116
  Transmission Date: 20210114
  Serious: Yes (Other)
  Sender: FDA-Public Use
  Company Number: JP-ROCHE-2710021

PATIENT
  Age: 77 Year
  Sex: Female

DRUGS (6)
  1. AVASTIN [Suspect]
     Active Substance: BEVACIZUMAB
     Indication: COLON CANCER
     Dosage: DOSAGE IS UNCERTAIN.
     Route: 041
  2. AVASTIN [Suspect]
     Active Substance: BEVACIZUMAB
     Indication: RECTAL CANCER
  3. OXALIPLATIN. [Concomitant]
     Active Substance: OXALIPLATIN
     Indication: COLON CANCER
     Dosage: DOSAGE IS UNCERTAIN.
     Route: 041
  4. XELODA [Suspect]
     Active Substance: CAPECITABINE
     Indication: RECTAL CANCER
  5. OXALIPLATIN. [Concomitant]
     Active Substance: OXALIPLATIN
     Indication: RECTAL CANCER
  6. XELODA [Suspect]
     Active Substance: CAPECITABINE
     Indication: COLON CANCER
     Dosage: DOSAGE IS UNCERTAIN.
     Route: 048

REACTIONS (1)
  - Posterior reversible encephalopathy syndrome [Recovered/Resolved]
